FAERS Safety Report 11741008 (Version 1)
Quarter: 2015Q4

REPORT INFORMATION
  Report Type: Spontaneous
  Country: CA (occurrence: CA)
  Receive Date: 20151115
  Receipt Date: 20151115
  Transmission Date: 20160304
  Serious: Yes (Other)
  Sender: FDA-Public Use
  Company Number: CA-ROCHE-1660324

PATIENT
  Age: 42 Year
  Sex: Male

DRUGS (7)
  1. XOLAIR [Suspect]
     Active Substance: OMALIZUMAB
     Indication: ASTHMA
     Route: 058
     Dates: start: 20140331
  2. XOLAIR [Suspect]
     Active Substance: OMALIZUMAB
     Route: 058
     Dates: start: 20140527
  3. PULMICORT TURBUHALER [Concomitant]
     Active Substance: BUDESONIDE
  4. NASONEX [Concomitant]
     Active Substance: MOMETASONE FUROATE
  5. SINGULAIR [Concomitant]
     Active Substance: MONTELUKAST SODIUM
  6. BRICANYL [Concomitant]
     Active Substance: TERBUTALINE SULFATE
  7. SYMBICORT [Concomitant]
     Active Substance: BUDESONIDE\FORMOTEROL FUMARATE DIHYDRATE

REACTIONS (11)
  - Asthma [Unknown]
  - Forced expiratory volume decreased [Unknown]
  - Respiratory disorder [Unknown]
  - Heart rate increased [Unknown]
  - Upper-airway cough syndrome [Unknown]
  - Discomfort [Unknown]
  - Middle insomnia [Unknown]
  - Blood pressure increased [Not Recovered/Not Resolved]
  - Nasopharyngitis [Unknown]
  - Terminal insomnia [Unknown]
  - Sleep disorder [Unknown]

NARRATIVE: CASE EVENT DATE: 20140424
